FAERS Safety Report 7527671-5 (Version None)
Quarter: 2011Q2

REPORT INFORMATION
  Report Type: 
  Country: None (occurrence: None)
  Receive Date: 20110607
  Receipt Date: 20110523
  Transmission Date: 20111010
  Serious: Yes (Hospitalization, Other)
  Sender: FDA-Public Use
  Company Number: PHEH2008US07502

PATIENT
  Sex: Male

DRUGS (57)
  1. HYDROCODONE BITARTRATE [Concomitant]
  2. ACTIQ [Concomitant]
  3. FOLIC ACID [Concomitant]
  4. COMPAZINE [Concomitant]
  5. ALTACE [Concomitant]
  6. CEFEPIME [Concomitant]
  7. LOPERAMIDE [Concomitant]
     Dosage: UNK
  8. VERSED [Concomitant]
  9. ATIVAN [Concomitant]
  10. LEVAQUIN [Concomitant]
  11. DOXYCYCLINE [Concomitant]
  12. AMOXICILLIN [Concomitant]
  13. ERLOTINIB HYDROCHLORIDE [Concomitant]
     Dosage: UNK
  14. TARCEVA [Concomitant]
  15. NITROSTAT [Concomitant]
  16. NARCAN [Concomitant]
  17. TAXOL [Concomitant]
     Dosage: UNK
  18. AMBIEN [Concomitant]
  19. PERCOCET [Concomitant]
  20. CHEMOTHERAPEUTICS NOS [Concomitant]
  21. ZOLPIDEM [Concomitant]
  22. DILAUDID [Concomitant]
  23. PROTONIX [Concomitant]
  24. NAVELBINE [Concomitant]
  25. AVASTIN [Concomitant]
  26. LACTULOSE [Concomitant]
  27. K-DUR [Concomitant]
  28. MILK OF MAGNESIA TAB [Concomitant]
  29. AVINZA [Concomitant]
  30. TIZANIDINE HCL [Concomitant]
  31. SENNA-MINT WAF [Concomitant]
  32. PANTOPRAZOLE [Concomitant]
  33. SODIUM CHLORIDE [Concomitant]
  34. CYMBALTA [Concomitant]
  35. RAMIPRIL [Concomitant]
  36. DOCUSATE [Concomitant]
  37. CARBOPLATIN [Concomitant]
  38. OXYCONTIN [Concomitant]
  39. XANAX [Concomitant]
  40. CIPROFLOXACIN [Concomitant]
  41. MEGACE [Concomitant]
  42. PENICILLIN VK [Concomitant]
  43. FOLATE SODIUM [Concomitant]
  44. MIRALAX [Concomitant]
  45. ACETAMINOPHEN [Concomitant]
  46. MORPHINE [Concomitant]
  47. PROCHLORPERAZINE TAB [Concomitant]
  48. CEPHALEXIN [Concomitant]
  49. DEXAMETHASONE [Concomitant]
  50. CHLORHEXIDINE GLUCONATE [Concomitant]
  51. ARANESP [Concomitant]
  52. ZOMETA [Suspect]
     Dosage: UNK
  53. FENTANYL [Concomitant]
  54. LORAZEPAM [Concomitant]
  55. NEUPOGEN [Concomitant]
  56. NAVELBINE [Concomitant]
  57. LUNESTA [Concomitant]

REACTIONS (30)
  - LYMPHADENOPATHY [None]
  - ANHEDONIA [None]
  - MITRAL VALVE INCOMPETENCE [None]
  - BONE DISORDER [None]
  - AORTIC DILATATION [None]
  - PSEUDOMONAS INFECTION [None]
  - METASTASES TO BONE [None]
  - PYREXIA [None]
  - EMPHYSEMA [None]
  - PAIN [None]
  - ANXIETY [None]
  - INTERSTITIAL LUNG DISEASE [None]
  - TRICUSPID VALVE INCOMPETENCE [None]
  - NEUTROPENIA [None]
  - ANAEMIA [None]
  - HAEMATOCHEZIA [None]
  - COLON CANCER METASTATIC [None]
  - COMPRESSION FRACTURE [None]
  - OSTEONECROSIS OF JAW [None]
  - INJURY [None]
  - HYPERTENSION [None]
  - CHEST PAIN [None]
  - GASTROINTESTINAL HAEMORRHAGE [None]
  - LOOSE TOOTH [None]
  - HEPATIC LESION [None]
  - CONSTIPATION [None]
  - PAIN IN EXTREMITY [None]
  - BACTERIAL INFECTION [None]
  - HAEMATURIA [None]
  - LEUKOCYTOSIS [None]
